FAERS Safety Report 7644221-3 (Version None)
Quarter: 2011Q3

REPORT INFORMATION
  Report Type: 
  Country: None (occurrence: None)
  Receive Date: 20110729
  Receipt Date: 20110721
  Transmission Date: 20111222
  Serious: Yes (Hospitalization, Other)
  Sender: FDA-Public Use
  Company Number: US-BAYER-201012518NA

PATIENT
  Age: 42 Year
  Sex: Female
  Weight: 82.54 kg

DRUGS (16)
  1. VITAMIN D [Concomitant]
  2. ASPIRIN [Concomitant]
  3. METHOTREXATE [Concomitant]
  4. YAZ [Suspect]
     Dosage: UNK
     Dates: start: 20061206, end: 20070215
  5. PLAQUENIL [Concomitant]
  6. CLONAZEPAM [Concomitant]
  7. IRON W/VITAMINS NOS [Concomitant]
  8. NEURONTIN [Concomitant]
     Dosage: 300 MG, UNK
  9. IMITREX [Concomitant]
     Indication: MIGRAINE
  10. CYMBALTA [Concomitant]
     Dosage: 60 MG, UNK
  11. PREDNISONE [Concomitant]
     Indication: ARTHRITIS
     Dosage: 10 MG, UNK
  12. AMITRIPTYLINE HCL [Concomitant]
  13. VICODIN [Concomitant]
  14. NAPROSYN [Concomitant]
     Indication: RHEUMATOID ARTHRITIS
     Dosage: UNK
     Dates: start: 20070101
  15. TESTOSTERONE [Concomitant]
     Dosage: UNK UNK, QD
     Route: 061
  16. OXYMORPHONE HYDROCHLORIDE [Concomitant]
     Dosage: 10 MG, UNK

REACTIONS (5)
  - DEPRESSION [None]
  - ARTHRALGIA [None]
  - DEEP VEIN THROMBOSIS [None]
  - HYPOAESTHESIA [None]
  - ANXIETY [None]
